FAERS Safety Report 13647102 (Version 1)
Quarter: 2017Q2

REPORT INFORMATION
  Report Type: Spontaneous
  Country: US (occurrence: US)
  Receive Date: 20170613
  Receipt Date: 20170613
  Transmission Date: 20170830
  Serious: No
  Sender: FDA-Public Use
  Company Number: US-BAYER-2017-097081

PATIENT
  Age: 53 Year
  Sex: Female
  Weight: 67.98 kg

DRUGS (1)
  1. MIRALAX [Suspect]
     Active Substance: POLYETHYLENE GLYCOL 3350
     Indication: GASTROINTESTINAL DISORDER
     Dosage: UNK, PRN
     Route: 065

REACTIONS (5)
  - Constipation [Unknown]
  - Incorrect dosage administered [Unknown]
  - Circumstance or information capable of leading to medication error [Unknown]
  - Diarrhoea [Unknown]
  - Incorrect drug administration duration [Unknown]
